FAERS Safety Report 25711391 (Version 1)
Quarter: 2025Q3

REPORT INFORMATION
  Report Type: Spontaneous
  Country: GB (occurrence: GB)
  Receive Date: 20250821
  Receipt Date: 20250821
  Transmission Date: 20251020
  Serious: Yes (Other)
  Sender: ELI LILLY AND COMPANY
  Company Number: GB-MHRA-EMIS-12594-fc6f2985-99c4-4a5d-8a7d-782423fe5e2a

PATIENT
  Age: 29 Year
  Sex: Female
  Weight: 100 kg

DRUGS (5)
  1. MOUNJARO [Suspect]
     Active Substance: TIRZEPATIDE
     Indication: Product used for unknown indication
     Dosage: 5 MG, WEEKLY (1/W)
     Route: 058
  2. CALCIPOTRIENE [Concomitant]
     Active Substance: CALCIPOTRIENE
     Indication: Product used for unknown indication
     Dosage: 60 ML, BID (APPLY TWICE A DAY)
     Route: 065
     Dates: start: 20250221, end: 20250405
  3. ENSTILAR [BETAMETHASONE DIPROPIONATE;CALCIPOT [Concomitant]
     Indication: Product used for unknown indication
     Dosage: 60 G, DAILY (APPLY ONCE A DAY TO THE AFFECTED AREAS. READ THE INFORMATION LEAFLET)
     Route: 003
     Dates: start: 20250225, end: 20250409
  4. ENSTILAR [BETAMETHASONE DIPROPIONATE;CALCIPOT [Concomitant]
     Dosage: 60 G, DAILY (APPLY ONCE A DAY TO THE AFFECTED AREAS. READ THE INFORMATION LEAFLET)
     Route: 003
     Dates: start: 20250506
  5. BETAMETHASONE DIPROPIONATE\CALCIPOTRIENE [Concomitant]
     Active Substance: BETAMETHASONE DIPROPIONATE\CALCIPOTRIENE
     Indication: Product used for unknown indication
     Dosage: 30 G, DAILY (APPLY ONCE A DAY TO THE AFFECTED AREAS. READ THE INFORMATION LEAFLET)
     Route: 065
     Dates: start: 20250422

REACTIONS (2)
  - Psoriasis [Unknown]
  - Rash [Recovered/Resolved]
